FAERS Safety Report 25605458 (Version 3)
Quarter: 2025Q3

REPORT INFORMATION
  Report Type: Report from Study
  Country: JP (occurrence: JP)
  Receive Date: 20250725
  Receipt Date: 20250904
  Transmission Date: 20251021
  Serious: Yes (Other)
  Sender: GILEAD
  Company Number: JP-GILEAD-2025-0721812

PATIENT
  Age: 62 Year
  Sex: Female

DRUGS (2)
  1. SACITUZUMAB GOVITECAN-HZIY [Suspect]
     Active Substance: SACITUZUMAB GOVITECAN-HZIY
     Indication: Triple negative breast cancer
     Route: 065
  2. DENOSUMAB [Concomitant]
     Active Substance: DENOSUMAB
     Indication: Triple negative breast cancer

REACTIONS (5)
  - Metastases to liver [Unknown]
  - Metastases to bone marrow [Unknown]
  - Anaemia [Unknown]
  - Platelet count decreased [Unknown]
  - Alopecia [Unknown]
